FAERS Safety Report 7207398-X (Version None)
Quarter: 2011Q1

REPORT INFORMATION
  Report Type: 
  Country: None (occurrence: None)
  Receive Date: 20110103
  Receipt Date: 20101221
  Transmission Date: 20110831
  Serious: Yes (Other)
  Sender: FDA-Public Use
  Company Number: PHHY2010US84033

PATIENT
  Sex: Female
  Weight: 65.76 kg

DRUGS (10)
  1. GLYBURIDE [Concomitant]
  2. LIPITOR [Concomitant]
     Route: 048
  3. ASPIRIN [Concomitant]
  4. HYDROCHLOROTHIAZDE TAB [Concomitant]
  5. ALLOPURINOL [Concomitant]
  6. CARVEDILOL [Concomitant]
     Route: 048
  7. LISINOPRIL [Concomitant]
  8. COUMADIN [Concomitant]
     Route: 048
  9. DIGOXIN [Concomitant]
  10. TASIGNA [Suspect]
     Indication: CHRONIC MYELOID LEUKAEMIA
     Dosage: 600 MG, UNK

REACTIONS (4)
  - MALAISE [None]
  - DIARRHOEA [None]
  - VOMITING [None]
  - NAUSEA [None]
